FAERS Safety Report 5280820-4 (Version None)
Quarter: 2007Q1

REPORT INFORMATION
  Report Type: 
  Country: None (occurrence: None)
  Receive Date: 20070329
  Receipt Date: 20070319
  Transmission Date: 20070707
  Serious: Yes (Hospitalization)
  Sender: FDA-Public Use
  Company Number: FR-PFIZER INC-2007021897

PATIENT
  Age: 82 Year
  Sex: Male
  Weight: 79 kg

DRUGS (7)
  1. ALDACTONE [Suspect]
     Route: 048
  2. MODOPAR [Concomitant]
     Dosage: DAILY DOSE:125MG
     Route: 048
  3. SERC [Concomitant]
     Dosage: DAILY DOSE:8MG
     Route: 048
  4. FUROSEMIDE [Concomitant]
     Dosage: DAILY DOSE:40MG
     Route: 048
  5. BUFLOMEDIL [Concomitant]
     Dosage: DAILY DOSE:300MG
     Route: 048
  6. OMIX [Concomitant]
     Route: 048
  7. ECONAZOLE NITRATE [Concomitant]

REACTIONS (3)
  - EOSINOPHILIA [None]
  - PEMPHIGOID [None]
  - RASH ERYTHEMATOUS [None]
